FAERS Safety Report 22068634 (Version 1)
Quarter: 2023Q1

REPORT INFORMATION
  Report Type: Spontaneous
  Country: CN (occurrence: CN)
  Receive Date: 20230307
  Receipt Date: 20230307
  Transmission Date: 20230418
  Serious: Yes (Hospitalization, Other)
  Sender: FDA-Public Use
  Company Number: CN-ABBVIE-4329342

PATIENT
  Age: 63 Year
  Sex: Male

DRUGS (3)
  1. VENCLEXTA [Suspect]
     Active Substance: VENETOCLAX
     Indication: Acute leukaemia
     Route: 048
     Dates: start: 20230202, end: 20230208
  2. CYTARABINE [Suspect]
     Active Substance: CYTARABINE
     Indication: Acute leukaemia
     Dosage: 85 MILLIGRAM
     Route: 041
     Dates: start: 20230201, end: 20230208
  3. OMACETAXINE [Suspect]
     Active Substance: OMACETAXINE
     Indication: Acute leukaemia
     Dosage: 2 MILLIGRAM
     Route: 041
     Dates: start: 20230201, end: 20230208

REACTIONS (2)
  - Myelosuppression [Recovering/Resolving]
  - Off label use [Recovered/Resolved]

NARRATIVE: CASE EVENT DATE: 20230202
